FAERS Safety Report 5210852-3 (Version None)
Quarter: 2006Q4

REPORT INFORMATION
  Report Type: 
  Country: None (occurrence: None)
  Receive Date: 20061101
  Receipt Date: 20060819
  Transmission Date: 20070319
  Serious: No
  Sender: FDA-Public Use
  Company Number: 2006PV019759

PATIENT
  Age: 64 Year
  Sex: Male
  Weight: 121.564 kg

DRUGS (11)
  1. SYMLIN [Suspect]
     Indication: DIABETES MELLITUS NON-INSULIN-DEPENDENT
     Dosage: SEE IMAGE
     Route: 058
     Dates: start: 20060726, end: 20060730
  2. SYMLIN [Suspect]
     Indication: DIABETES MELLITUS NON-INSULIN-DEPENDENT
     Dosage: SEE IMAGE
     Route: 058
     Dates: start: 20060731
  3. PLAVIX [Concomitant]
  4. ASPIRIN [Concomitant]
  5. COREG [Concomitant]
  6. VYTORIN [Concomitant]
  7. LISINOPRIL [Concomitant]
  8. BUMEX [Concomitant]
  9. METFORMIN HCL [Concomitant]
  10. HUMALOG [Concomitant]
  11. LANTUS [Concomitant]

REACTIONS (2)
  - HEADACHE [None]
  - WEIGHT DECREASED [None]
